FAERS Safety Report 19270120 (Version 2)
Quarter: 2021Q2

REPORT INFORMATION
  Report Type: Spontaneous
  Country: US (occurrence: US)
  Receive Date: 20210518
  Receipt Date: 20210603
  Transmission Date: 20210717
  Serious: Yes (Other)
  Sender: FDA-Public Use
  Company Number: US-PFIZER INC-2021516995

PATIENT
  Age: 61 Year
  Sex: Female

DRUGS (1)
  1. MENEST [Suspect]
     Active Substance: ESTROGENS, ESTERIFIED
     Indication: MULTIPLE SCLEROSIS
     Dosage: 1.25 MG, UNK

REACTIONS (2)
  - Multiple sclerosis [Unknown]
  - Drug effective for unapproved indication [Unknown]
